FAERS Safety Report 6238051-7 (Version None)
Quarter: 2009Q2

REPORT INFORMATION
  Report Type: 
  Country: None (occurrence: None)
  Receive Date: 20090622
  Receipt Date: 20090618
  Transmission Date: 20091009
  Serious: Yes (Life-Threatening, Hospitalization, Other)
  Sender: FDA-Public Use
  Company Number: US-BRISTOL-MYERS SQUIBB COMPANY-14657639

PATIENT
  Age: 66 Year
  Sex: Female

DRUGS (7)
  1. ERBITUX [Suspect]
     Indication: COLORECTAL CANCER
     Dosage: INITIATED ON 12JAN2009:1ST WK:400MG/M2 250MG/M2 WEEKLY  ALSO GIVEN ON 8MAY09
     Route: 042
     Dates: start: 20090522, end: 20090522
  2. CARDIZEM [Suspect]
     Route: 048
     Dates: start: 20090112
  3. IRINOTECAN HCL [Suspect]
     Dosage: LAST DOSE ON 02-APR-2009
  4. INSULIN [Concomitant]
  5. MAGNESIUM SULFATE [Concomitant]
  6. CALCIUM [Concomitant]
  7. BENADRYL [Concomitant]
     Indication: PREMEDICATION

REACTIONS (3)
  - BLOOD MAGNESIUM DECREASED [None]
  - BRADYCARDIA [None]
  - CARDIAC ARREST [None]
